FAERS Safety Report 5429271-X (Version None)
Quarter: 2007Q3

REPORT INFORMATION
  Report Type: 
  Country: None (occurrence: None)
  Receive Date: 20070827
  Receipt Date: 20070827
  Transmission Date: 20080115
  Serious: Yes (Hospitalization)
  Sender: FDA-Public Use
  Company Number: None

PATIENT
  Age: 35 Year
  Sex: Male
  Weight: 73.4827 kg

DRUGS (1)
  1. AUGMENTIN XR [Suspect]
     Indication: SINUSITIS
     Dosage: 2 TABLETS TWICE DAILY PO
     Route: 048
     Dates: start: 20070815, end: 20070821

REACTIONS (1)
  - STEVENS-JOHNSON SYNDROME [None]
